FAERS Safety Report 12804422 (Version 2)
Quarter: 2019Q4

REPORT INFORMATION
  Report Type: Report from Study
  Country: US (occurrence: US)
  Receive Date: 20161003
  Receipt Date: 20191009
  Transmission Date: 20200122
  Serious: Yes (Other)
  Sender: FDA-Public Use
  Company Number: US-GILEAD-2016-0210519

PATIENT
  Age: 65 Year
  Sex: Female

DRUGS (1)
  1. LEDIPASVIR/SOFOSBUVIR [Suspect]
     Active Substance: LEDIPASVIR\SOFOSBUVIR
     Indication: HEPATITIS C
     Dosage: 1 DF, QD
     Route: 048
     Dates: start: 2016, end: 201606

REACTIONS (13)
  - Neuropathy peripheral [Not Recovered/Not Resolved]
  - Drug ineffective [Recovered/Resolved]
  - Gastric disorder [Unknown]
  - Decreased appetite [Unknown]
  - Headache [Not Recovered/Not Resolved]
  - Ammonia increased [Unknown]
  - Chills [Unknown]
  - Product storage error [Recovered/Resolved]
  - Weight decreased [Unknown]
  - Fatigue [Unknown]
  - Liver disorder [Not Recovered/Not Resolved]
  - Nausea [Unknown]
  - Swelling [Not Recovered/Not Resolved]

NARRATIVE: CASE EVENT DATE: 2016
